FAERS Safety Report 4320496-3 (Version None)
Quarter: 2004Q1

REPORT INFORMATION
  Report Type: 
  Country: None (occurrence: None)
  Receive Date: 20040317
  Receipt Date: 20040308
  Transmission Date: 20041129
  Serious: Yes (Other)
  Sender: FDA-Public Use
  Company Number: 200402963

PATIENT
  Age: 87 Year
  Sex: Male

DRUGS (4)
  1. EXTRA STRENGTH TYLENOL [Suspect]
     Dosage: 1000 MG BID PO
     Route: 048
     Dates: start: 20040123, end: 20040126
  2. COUMADIN [Suspect]
     Dosage: 1 MG QD PO
     Route: 048
     Dates: end: 20040127
  3. IMDUR [Concomitant]
  4. ADALAT [Concomitant]

REACTIONS (1)
  - INTERNATIONAL NORMALISED RATIO INCREASED [None]
